FAERS Safety Report 14977804 (Version 1)
Quarter: 2018Q2

REPORT INFORMATION
  Report Type: Spontaneous
  Country: US (occurrence: US)
  Receive Date: 20180515
  Receipt Date: 20180515
  Transmission Date: 20180711
  Serious: Yes (Other)
  Sender: FDA-Public Use
  Company Number: None

PATIENT
  Age: 64 Year
  Sex: Female
  Weight: 69.75 kg

DRUGS (5)
  1. MULTI [Concomitant]
  2. TRINTELLIX [Suspect]
     Active Substance: VORTIOXETINE HYDROBROMIDE
     Indication: DEPRESSION
     Dosage: OTHER ROUTE:BY MOUTH WITH WATER?
     Route: 048
     Dates: start: 20160101, end: 20170315
  3. SEREQUEL [Concomitant]
  4. CALCIUM [Concomitant]
     Active Substance: CALCIUM
  5. ZOLOFT [Concomitant]
     Active Substance: SERTRALINE HYDROCHLORIDE

REACTIONS (3)
  - Anxiety [None]
  - Depression [None]
  - Confusional state [None]

NARRATIVE: CASE EVENT DATE: 20170315
